FAERS Safety Report 9579478 (Version 2)
Quarter: 2013Q4

REPORT INFORMATION
  Report Type: Spontaneous
  Country: US (occurrence: US)
  Receive Date: 20131001
  Receipt Date: 20131001
  Transmission Date: 20140711
  Serious: No
  Sender: FDA-Public Use
  Company Number: US-AMGEN-USASP2013008739

PATIENT
  Age: 58 Year
  Sex: Female
  Weight: 66.67 kg

DRUGS (20)
  1. ENBREL [Suspect]
     Indication: PRODUCT USED FOR UNKNOWN INDICATION
     Dosage: 50 MG, QWK
     Route: 058
     Dates: end: 20130606
  2. PLAQUENIL                          /00072602/ [Concomitant]
     Dosage: 200 MG, UNK
     Route: 048
  3. MELOXICAM [Concomitant]
     Dosage: 15 MG, UNK
     Route: 048
  4. METHOTREXATE [Concomitant]
     Dosage: 2.5 MG, UNK
     Route: 048
  5. QUINAPRIL [Concomitant]
     Dosage: 20 MG, UNK
     Route: 048
  6. PRAVASTATIN [Concomitant]
     Dosage: 80 MG, UNK
     Route: 048
  7. RANITIDINE [Concomitant]
     Dosage: 75 MG, UNK
     Route: 048
  8. METHOCARBAMOL [Concomitant]
     Dosage: 500 MG, UNK
     Route: 048
  9. NEXIUM                             /01479302/ [Concomitant]
     Dosage: 20 MG, UNK
     Route: 048
  10. LEXAPRO [Concomitant]
     Dosage: 20 MG, UNK
     Route: 048
  11. TRAZODONE [Concomitant]
     Dosage: 300 MG, UNK
     Route: 048
  12. DOCUSATE SOD [Concomitant]
     Dosage: 100 MG, UNK
     Route: 048
  13. VITAMIN D                          /00107901/ [Concomitant]
     Dosage: 2000 UNIT, UNK
     Route: 048
  14. CALCIUM [Concomitant]
     Dosage: 1200 UNK, UNK
     Route: 048
  15. ABILIFY [Concomitant]
     Dosage: 20 MG, UNK
     Route: 048
  16. FOLIC ACID [Concomitant]
     Dosage: 5 MG, UNK
     Route: 048
  17. LEUCOVORIN CALCIUM                 /00566702/ [Concomitant]
     Dosage: UNK
     Route: 030
  18. HYDROCODONE [Concomitant]
     Dosage: UNK
     Route: 048
  19. GUAI/PE [Concomitant]
     Dosage: UNK
     Route: 048
  20. CELEBREX [Concomitant]
     Dosage: 100 MG, UNK
     Route: 048

REACTIONS (3)
  - Pain [Unknown]
  - Drug ineffective [Unknown]
  - Rheumatoid arthritis [Unknown]
